FAERS Safety Report 6808599-2 (Version None)
Quarter: 2010Q2

REPORT INFORMATION
  Report Type: 
  Country: None (occurrence: None)
  Receive Date: 20100629
  Receipt Date: 20090715
  Transmission Date: 20101027
  Serious: No
  Sender: FDA-Public Use
  Company Number: US-PFIZER INC-2009244759

PATIENT
  Sex: Male
  Weight: 85.728 kg

DRUGS (4)
  1. XANAX [Suspect]
     Indication: STRESS
     Dosage: 0.25 MG, 3X/DAY
     Route: 048
     Dates: start: 20070101
  2. XANAX [Suspect]
     Indication: PANIC ATTACK
  3. XANAX XR [Suspect]
     Indication: STRESS
     Dosage: 1 MG, 1X/DAY
     Route: 048
     Dates: start: 20090601, end: 20090601
  4. XANAX XR [Suspect]
     Indication: PANIC ATTACK

REACTIONS (3)
  - MALAISE [None]
  - PANIC ATTACK [None]
  - STRESS [None]
